FAERS Safety Report 5353798-2 (Version None)
Quarter: 2007Q2

REPORT INFORMATION
  Report Type: 
  Country: None (occurrence: None)
  Receive Date: 20070608
  Receipt Date: 20070608
  Transmission Date: 20071010
  Serious: Yes (Disabling, Other)
  Sender: FDA-Public Use
  Company Number: None

PATIENT
  Age: 33 Year
  Sex: Female
  Weight: 52.6173 kg

DRUGS (1)
  1. LYRICA [Suspect]
     Indication: CONVULSION
     Dosage: 75 MG DAILY PO
     Route: 048
     Dates: start: 20070210, end: 20070602

REACTIONS (6)
  - ACNE [None]
  - MYALGIA [None]
  - RASH PRURITIC [None]
  - SCAR [None]
  - SKIN DISORDER [None]
  - SKIN ULCER [None]
